FAERS Safety Report 19767167 (Version 1)
Quarter: 2021Q3

REPORT INFORMATION
  Report Type: Spontaneous
  Country: US (occurrence: US)
  Receive Date: 20210827
  Receipt Date: 20210827
  Transmission Date: 20211014
  Serious: No
  Sender: FDA-Public Use
  Company Number: None

PATIENT
  Sex: Female

DRUGS (1)
  1. KESIMPTA [Suspect]
     Active Substance: OFATUMUMAB
     Indication: MULTIPLE SCLEROSIS
     Dosage: INJECT 1 PEN SC AT WEEK 0,1,2, AND THEN 1 MONTHLY THEREAFTER BEGINNING ON WEEK 4
     Route: 058
     Dates: start: 202106

REACTIONS (5)
  - Muscular weakness [None]
  - Thinking abnormal [None]
  - Laboratory test abnormal [None]
  - Visual impairment [None]
  - Progressive multifocal leukoencephalopathy [None]
